FAERS Safety Report 7244304-6 (Version None)
Quarter: 2011Q1

REPORT INFORMATION
  Report Type: 
  Country: None (occurrence: None)
  Receive Date: 20110118
  Receipt Date: 20110103
  Transmission Date: 20110831
  Serious: Yes (Other)
  Sender: FDA-Public Use
  Company Number: TPA2010A06410

PATIENT
  Age: 54 Year
  Sex: Male

DRUGS (1)
  1. ADENURIC (FESUXOSTAT) [Suspect]
     Indication: PRODUCT USED FOR UNKNOWN INDICATION
     Dosage: 80 MG (80 MG, 1IN 1 D) ORAL
     Route: 048
     Dates: start: 20100101, end: 20100101

REACTIONS (2)
  - MALAISE [None]
  - BRADYCARDIA [None]
